FAERS Safety Report 5452332-6 (Version None)
Quarter: 2007Q3

REPORT INFORMATION
  Report Type: 
  Country: None (occurrence: None)
  Receive Date: 20070912
  Receipt Date: 20070912
  Transmission Date: 20080115
  Serious: Yes (Hospitalization)
  Sender: FDA-Public Use
  Company Number: None

PATIENT
  Age: 63 Year
  Sex: Female
  Weight: 61.1 kg

DRUGS (1)
  1. XELODA [Suspect]
     Indication: BREAST CANCER METASTATIC
     Dosage: 1500MG 2 TIMES A DAY PO
     Route: 048
     Dates: start: 20070822, end: 20070904

REACTIONS (5)
  - CEREBRAL HAEMORRHAGE [None]
  - DISEASE PROGRESSION [None]
  - FACE INJURY [None]
  - FALL [None]
  - HEPATIC LESION [None]
